FAERS Safety Report 7264227-6 (Version None)
Quarter: 2011Q1

REPORT INFORMATION
  Report Type: 
  Country: None (occurrence: None)
  Receive Date: 20110131
  Receipt Date: 20110119
  Transmission Date: 20110831
  Serious: No
  Sender: FDA-Public Use
  Company Number: US-BIOGENIDEC-2011BI002304

PATIENT
  Age: 34 Year
  Sex: Female

DRUGS (2)
  1. TYSABRI [Suspect]
     Indication: MULTIPLE SCLEROSIS
     Route: 042
     Dates: start: 20101123
  2. TYSABRI [Suspect]
     Route: 042
     Dates: start: 20080616, end: 20090224

REACTIONS (6)
  - COGNITIVE DISORDER [None]
  - LARYNGITIS [None]
  - OROPHARYNGEAL PAIN [None]
  - NASOPHARYNGITIS [None]
  - ANXIETY [None]
  - FATIGUE [None]
